FAERS Safety Report 7683743-6 (Version None)
Quarter: 2011Q3

REPORT INFORMATION
  Report Type: 
  Country: None (occurrence: None)
  Receive Date: 20110810
  Receipt Date: 20110728
  Transmission Date: 20111222
  Serious: Yes (Other)
  Sender: FDA-Public Use
  Company Number: CA-2011-1757

PATIENT
  Age: 78 Year
  Sex: Male
  Weight: 86.8 kg

DRUGS (6)
  1. PANTOPRAZOLE [Concomitant]
  2. HYDROMORPHONE HCL [Concomitant]
  3. SENOKOT [Concomitant]
  4. NAVELBINE [Suspect]
     Indication: LUNG NEOPLASM MALIGNANT
     Dosage: 48 MG, IV
     Route: 042
     Dates: start: 20110505, end: 20110728
  5. CISPLATIN [Suspect]
     Indication: LUNG NEOPLASM MALIGNANT
     Dates: start: 20110505, end: 20110621
  6. ZOPICLONE [Concomitant]

REACTIONS (3)
  - WHITE BLOOD CELLS URINE POSITIVE [None]
  - BLOOD URINE PRESENT [None]
  - DYSURIA [None]
